FAERS Safety Report 7954293 (Version 2)
Quarter: 2014Q2

REPORT INFORMATION
  Report Type: Spontaneous
  Country: FR (occurrence: FR)
  Receive Date: 20110520
  Receipt Date: 20140515
  Transmission Date: 20141212
  Serious: Yes (Other)
  Sender: FDA-Public Use
  Company Number: FR-ASTRAZENECA-2011SE28899

PATIENT
  Age: 80 Year
  Sex: Female

DRUGS (3)
  1. IRESSA [Suspect]
     Indication: METASTATIC BRONCHIAL CARCINOMA
     Route: 048
     Dates: start: 20110104, end: 20110303
  2. ZESTORETIC [Concomitant]
     Route: 048
  3. LIPANTHYL [Concomitant]

REACTIONS (1)
  - Hepatocellular injury [Recovered/Resolved]
